FAERS Safety Report 17350494 (Version 2)
Quarter: 2020Q1

REPORT INFORMATION
  Report Type: Spontaneous
  Country: ES (occurrence: ES)
  Receive Date: 20200130
  Receipt Date: 20200312
  Transmission Date: 20200409
  Serious: Yes (Hospitalization, Other)
  Sender: FDA-Public Use
  Company Number: ES-AUROBINDO-AUR-APL-2020-004952

PATIENT
  Age: 83 Year
  Sex: Female

DRUGS (3)
  1. QUETIAPINE. [Suspect]
     Active Substance: QUETIAPINE
     Indication: DEMENTIA
     Dosage: 150 MILLIGRAM, ONCE A DAY
     Route: 065
     Dates: start: 20191024
  2. SEROQUEL [Concomitant]
     Active Substance: QUETIAPINE FUMARATE
     Indication: DEMENTIA
     Dosage: UNK (1 A DAY)
     Route: 048
     Dates: start: 20191024
  3. QUETIAPINA STADA [Concomitant]
     Active Substance: QUETIAPINE FUMARATE
     Indication: VASCULAR DEMENTIA
     Dosage: UNK (2 A DAY)
     Route: 048
     Dates: start: 20191024

REACTIONS (3)
  - Somnolence [Unknown]
  - Muscle rigidity [Unknown]
  - Tremor [Unknown]

NARRATIVE: CASE EVENT DATE: 201911
